FAERS Safety Report 4830661-4 (Version None)
Quarter: 2005Q4

REPORT INFORMATION
  Report Type: 
  Country: None (occurrence: None)
  Receive Date: 20051114
  Receipt Date: 20051103
  Transmission Date: 20060501
  Serious: Yes (Death)
  Sender: FDA-Public Use
  Company Number: 2005-11-0224

PATIENT
  Sex: Male

DRUGS (4)
  1. SALBUTAMOL SULPHATE  'LIKE PROVENTIL HFA^ [Suspect]
     Dosage: ORAL AER INH
     Route: 055
  2. ATROVENT [Suspect]
     Dosage: INHALATION
     Route: 055
  3. PERINDOPRIL [Suspect]
     Dosage: 2 MG QD
  4. SYMBICORT (BUDESONIDE/FORMOTEROL) [Suspect]

REACTIONS (1)
  - CHRONIC OBSTRUCTIVE PULMONARY DISEASE [None]
